FAERS Safety Report 16736970 (Version 1)
Quarter: 2019Q3

REPORT INFORMATION
  Report Type: Spontaneous
  Country: FR (occurrence: FR)
  Receive Date: 20190823
  Receipt Date: 20190823
  Transmission Date: 20191005
  Serious: Yes (Life-Threatening, Hospitalization)
  Sender: FDA-Public Use
  Company Number: FR-BAUSCH-BL-2019-023586

PATIENT
  Age: 58 Year
  Sex: Male
  Weight: 70 kg

DRUGS (3)
  1. ENDOXAN [Suspect]
     Active Substance: CYCLOPHOSPHAMIDE
     Indication: AUTOIMMUNE HAEMOLYTIC ANAEMIA
     Dosage: 1 CYCLICAL
     Route: 042
     Dates: start: 20190718, end: 20190718
  2. MABTHERA [Suspect]
     Active Substance: RITUXIMAB
     Indication: AUTOIMMUNE HAEMOLYTIC ANAEMIA
     Dosage: 1 CYCLICAL
     Route: 042
     Dates: start: 20190718, end: 20190718
  3. DEXAMETHASONE. [Suspect]
     Active Substance: DEXAMETHASONE
     Indication: AUTOIMMUNE HAEMOLYTIC ANAEMIA
     Route: 048
     Dates: end: 201907

REACTIONS (1)
  - Pneumocystis jirovecii pneumonia [Not Recovered/Not Resolved]

NARRATIVE: CASE EVENT DATE: 20190722
